FAERS Safety Report 24820104 (Version 3)
Quarter: 2025Q1

REPORT INFORMATION
  Report Type: Spontaneous
  Country: US (occurrence: US)
  Receive Date: 20250108
  Receipt Date: 20250321
  Transmission Date: 20250409
  Serious: Yes (Hospitalization, Other)
  Sender: BIOMARIN
  Company Number: US-SA-2025SA003126

PATIENT

DRUGS (1)
  1. LARONIDASE [Suspect]
     Active Substance: LARONIDASE
     Indication: Mucopolysaccharidosis I
     Dosage: 5.8 (UNITS UNSPECIFIED), QW
     Route: 042
     Dates: start: 202402

REACTIONS (4)
  - Septic shock [Recovering/Resolving]
  - Staphylococcal infection [Recovering/Resolving]
  - Vomiting [Recovering/Resolving]
  - Pyrexia [Recovering/Resolving]

NARRATIVE: CASE EVENT DATE: 20241223
